FAERS Safety Report 8778022 (Version 2)
Quarter: 2012Q4

REPORT INFORMATION
  Report Type: 
  Country: US (occurrence: US)
  Receive Date: 20120911
  Receipt Date: 20120928
  Transmission Date: 20130627
  Serious: No
  Sender: FDA-Public Use
  Company Number: US-PFIZER INC-2012220629

PATIENT
  Age: 31 Year
  Sex: Female

DRUGS (2)
  1. MORPHINE [Suspect]
     Indication: PAIN
     Dosage: UNK
     Route: 048
  2. DOXYCYCLINE [Suspect]
     Indication: INFECTION
     Dosage: UNK
     Route: 048

REACTIONS (2)
  - Drug hypersensitivity [Unknown]
  - Vomiting [Unknown]
